FAERS Safety Report 5317473-2 (Version None)
Quarter: 2007Q2

REPORT INFORMATION
  Report Type: 
  Country: None (occurrence: None)
  Receive Date: 20070507
  Receipt Date: 20070425
  Transmission Date: 20071010
  Serious: Yes (Other)
  Sender: FDA-Public Use
  Company Number: PHBS2007US07512

PATIENT
  Age: 77 Year
  Sex: Male

DRUGS (8)
  1. RADIATION THERAPY [Concomitant]
  2. CHEMOTHERAPEUTICS NOS [Concomitant]
  3. THERAGEN [Concomitant]
     Dosage: 2 DROPS IN EACH EYE EVERY 3 H
  4. PERCOCET [Concomitant]
     Dosage: 325 MG, QID
     Dates: start: 20030901
  5. ALKERAN [Concomitant]
     Dosage: 2 MG, QID
     Dates: start: 20040701
  6. PREDNISONE TAB [Concomitant]
     Dosage: 50 MG, BID
     Dates: start: 20040701
  7. LASIX [Concomitant]
     Indication: FLUID RETENTION
     Dosage: 40 MG, QD
     Dates: start: 20040901
  8. ZOMETA [Suspect]
     Indication: PLASMACYTOMA
     Dates: start: 20040701

REACTIONS (7)
  - DENTAL CARE [None]
  - DYSKINESIA [None]
  - IMPAIRED HEALING [None]
  - MUCOSAL HAEMORRHAGE [None]
  - MUCOSAL ULCERATION [None]
  - MULTIPLE MYELOMA [None]
  - OSTEONECROSIS [None]
